FAERS Safety Report 15211523 (Version 1)
Quarter: 2018Q3

REPORT INFORMATION
  Report Type: Spontaneous
  Country: US (occurrence: US)
  Receive Date: 20180702
  Receipt Date: 20180702
  Transmission Date: 20181010
  Serious: No
  Sender: FDA-Public Use
  Company Number: None

PATIENT
  Age: 57 Year
  Sex: Male
  Weight: 94.8 kg

DRUGS (1)
  1. REMICADE [Suspect]
     Active Substance: INFLIXIMAB
     Indication: CROHN^S DISEASE
     Dosage: ?          OTHER FREQUENCY:Q7 WEEKS;?
     Route: 042
     Dates: start: 2008

REACTIONS (3)
  - Pruritus [None]
  - Feeling abnormal [None]
  - Infusion related reaction [None]

NARRATIVE: CASE EVENT DATE: 20180627
